FAERS Safety Report 4964691-9 (Version None)
Quarter: 2006Q2

REPORT INFORMATION
  Report Type: 
  Country: None (occurrence: None)
  Receive Date: 20060406
  Receipt Date: 20050913
  Transmission Date: 20061013
  Serious: Yes (Hospitalization, Other)
  Sender: FDA-Public Use
  Company Number: US-MERCK-0509USA01850

PATIENT
  Age: 58 Year
  Sex: Male
  Weight: 89 kg

DRUGS (2)
  1. VIOXX [Suspect]
     Indication: ARTHRALGIA
     Route: 048
     Dates: start: 20030514, end: 20040929
  2. VIOXX [Suspect]
     Route: 048
     Dates: start: 20020219, end: 20020301

REACTIONS (29)
  - ANGINA UNSTABLE [None]
  - BACK PAIN [None]
  - BLOOD PRESSURE INCREASED [None]
  - CHEST PAIN [None]
  - CORONARY ARTERY DISEASE [None]
  - CORONARY ARTERY STENOSIS [None]
  - DEPRESSION [None]
  - DIVERTICULUM [None]
  - DYSPEPSIA [None]
  - GASTROINTESTINAL PAIN [None]
  - GASTROOESOPHAGEAL REFLUX DISEASE [None]
  - HAEMORRHOIDS [None]
  - HERPES VIRUS INFECTION [None]
  - HYPERHIDROSIS [None]
  - HYPERTENSION [None]
  - MENISCUS LESION [None]
  - METABOLIC ACIDOSIS [None]
  - MYOCARDIAL INFARCTION [None]
  - NAUSEA [None]
  - NECK PAIN [None]
  - NO THERAPEUTIC RESPONSE [None]
  - ONYCHOMYCOSIS [None]
  - POLYP [None]
  - POLYP COLORECTAL [None]
  - PROSTATITIS [None]
  - ROAD TRAFFIC ACCIDENT [None]
  - SHOULDER PAIN [None]
  - SPONDYLITIS [None]
  - SYNCOPE [None]
